FAERS Safety Report 7771297-5 (Version None)
Quarter: 2011Q3

REPORT INFORMATION
  Report Type: 
  Country: None (occurrence: None)
  Receive Date: 20110922
  Receipt Date: 20110920
  Transmission Date: 20111222
  Serious: Yes (Hospitalization, Other)
  Sender: FDA-Public Use
  Company Number: US-MERCK-1108USA00331

PATIENT
  Age: 76 Year
  Sex: Female
  Weight: 76 kg

DRUGS (3)
  1. ARIMIDEX [Concomitant]
     Indication: BREAST CANCER
     Route: 065
  2. FOSAMAX [Suspect]
     Route: 048
     Dates: start: 20050101, end: 20110101
  3. FOSAMAX [Suspect]
     Indication: OSTEOPOROSIS
     Route: 048
     Dates: start: 20050101, end: 20110101

REACTIONS (3)
  - BREAST CANCER [None]
  - PATHOLOGICAL FRACTURE [None]
  - ARTHROPATHY [None]
